FAERS Safety Report 8623043-0 (Version None)
Quarter: 2012Q3

REPORT INFORMATION
  Report Type: 
  Country: None (occurrence: None)
  Receive Date: 20120827
  Receipt Date: 20120817
  Transmission Date: 20120928
  Serious: Yes (Other)
  Sender: FDA-Public Use
  Company Number: US-JNJFOC-20120810164

PATIENT
  Sex: Male

DRUGS (14)
  1. ASACOL HD [Concomitant]
     Indication: COLITIS ULCERATIVE
     Route: 048
  2. METOPROLOL TARTRATE [Concomitant]
     Route: 048
  3. HYOSCYAMINE [Concomitant]
     Indication: MUSCLE SPASMS
     Route: 048
  4. PREDNISONE TAB [Suspect]
     Indication: PAIN
     Route: 065
  5. DEXILANT [Concomitant]
     Indication: GASTROOESOPHAGEAL REFLUX DISEASE
     Route: 048
  6. CYMBALTA [Concomitant]
     Indication: MOOD SWINGS
     Route: 048
  7. TRIGLIDE [Concomitant]
     Indication: BLOOD CHOLESTEROL
     Route: 048
  8. CLARITIN [Concomitant]
     Indication: MULTIPLE ALLERGIES
     Route: 048
  9. PREDNISONE TAB [Suspect]
     Indication: WEIGHT DECREASED
     Route: 065
  10. REMICADE [Suspect]
     Route: 042
     Dates: start: 20110101, end: 20120101
  11. ALL OTHER THERAPEUTIC PRODUCT [Concomitant]
     Indication: DIABETES MELLITUS
     Dosage: DOSE REPORTED 50000(UNITS UNSPECIFIED)
     Route: 048
  12. REMICADE [Suspect]
     Indication: COLITIS ULCERATIVE
     Route: 042
     Dates: start: 20120101
  13. ACETAMINOPHEN, ASPIRIN AND CAFFEINE [Concomitant]
     Route: 048
  14. GLIMEPIRIDE [Concomitant]
     Indication: DIABETES MELLITUS
     Route: 048

REACTIONS (9)
  - BLOOD GLUCOSE INCREASED [None]
  - APPENDIX DISORDER [None]
  - BLOOD TEST ABNORMAL [None]
  - INFLUENZA [None]
  - WEIGHT DECREASED [None]
  - PAIN [None]
  - DRUG INEFFECTIVE [None]
  - GALLBLADDER DISORDER [None]
  - INFECTION [None]
